FAERS Safety Report 12790500 (Version 1)
Quarter: 2016Q3

REPORT INFORMATION
  Report Type: Spontaneous
  Country: FR (occurrence: FR)
  Receive Date: 20160929
  Receipt Date: 20160929
  Transmission Date: 20161109
  Serious: Yes (Hospitalization)
  Sender: FDA-Public Use
  Company Number: FR-ASTRAZENECA-2016SF02246

PATIENT
  Age: 32 Year
  Sex: Male

DRUGS (11)
  1. ZITHROMAX [Concomitant]
     Active Substance: AZITHROMYCIN DIHYDRATE
  2. DELURSAN [Concomitant]
     Active Substance: URSODIOL
  3. NEBCINE [Suspect]
     Active Substance: TOBRAMYCIN
     Indication: INFECTIVE PULMONARY EXACERBATION OF CYSTIC FIBROSIS
     Route: 042
     Dates: start: 201607, end: 201607
  4. PULMOZYME [Concomitant]
     Active Substance: DORNASE ALFA
  5. VENTOLINE [Concomitant]
     Active Substance: ALBUTEROL
  6. INEXIUM [Concomitant]
     Active Substance: ESOMEPRAZOLE
  7. COLIMYCINE [Concomitant]
     Active Substance: COLISTIMETHATE SODIUM
  8. CREON [Concomitant]
     Active Substance: PANCRELIPASE AMYLASE\PANCRELIPASE LIPASE\PANCRELIPASE PROTEASE
  9. MERONEM [Suspect]
     Active Substance: MEROPENEM
     Indication: INFECTIVE PULMONARY EXACERBATION OF CYSTIC FIBROSIS
     Route: 042
     Dates: start: 201607, end: 201607
  10. TOCO [Concomitant]
     Active Substance: UNSPECIFIED INGREDIENT
  11. FORLAX [Concomitant]
     Active Substance: POLYETHYLENE GLYCOL 4000

REACTIONS (3)
  - Rhabdomyolysis [Recovering/Resolving]
  - Myalgia [Recovered/Resolved]
  - Immune-mediated necrotising myopathy [Not Recovered/Not Resolved]
